FAERS Safety Report 7886670-4 (Version None)
Quarter: 2011Q4

REPORT INFORMATION
  Report Type: 
  Country: None (occurrence: None)
  Receive Date: 20111102
  Receipt Date: 20110708
  Transmission Date: 20120403
  Serious: No
  Sender: FDA-Public Use
  Company Number: US-AMGEN-USASP2011005396

PATIENT
  Age: 22 Year
  Sex: Female

DRUGS (3)
  1. SIMPONI [Concomitant]
     Dosage: UNK
     Dates: start: 20110401
  2. ENBREL [Suspect]
     Indication: RHEUMATOID ARTHRITIS
     Dosage: 50 MG, QWK
     Dates: start: 20101228, end: 20110301
  3. ENBREL [Suspect]
     Indication: PSORIATIC ARTHROPATHY
     Dosage: 50 MG, QWK
     Dates: start: 20101228

REACTIONS (7)
  - DYSMENORRHOEA [None]
  - INJECTION SITE SWELLING [None]
  - INJECTION SITE ERYTHEMA [None]
  - INJECTION SITE PRURITUS [None]
  - INJECTION SITE PAIN [None]
  - CONJUNCTIVITIS INFECTIVE [None]
  - RASH [None]
